FAERS Safety Report 19077837 (Version 2)
Quarter: 2021Q2

REPORT INFORMATION
  Report Type: Spontaneous
  Country: JP (occurrence: JP)
  Receive Date: 20210331
  Receipt Date: 20210512
  Transmission Date: 20210717
  Serious: Yes (Hospitalization)
  Sender: FDA-Public Use
  Company Number: JP-ORION CORPORATION ORION PHARMA-ENTC2021-0081

PATIENT
  Age: 81 Year
  Sex: Female

DRUGS (1)
  1. STALEVO [Suspect]
     Active Substance: CARBIDOPA\ENTACAPONE\LEVODOPA
     Indication: PARKINSON^S DISEASE
     Dosage: STRENGTH: 100/10.8/100 MG
     Route: 048

REACTIONS (1)
  - Limb injury [Unknown]
